FAERS Safety Report 17315106 (Version 8)
Quarter: 2021Q2

REPORT INFORMATION
  Report Type: Report from Study
  Country: CO (occurrence: CO)
  Receive Date: 20200124
  Receipt Date: 20210504
  Transmission Date: 20210716
  Serious: Yes (Hospitalization, Other)
  Sender: FDA-Public Use
  Company Number: NVSC2019CO059241

PATIENT
  Age: 43 Year
  Sex: Female
  Weight: 60 kg

DRUGS (8)
  1. REVOLADE [Suspect]
     Active Substance: ELTROMBOPAG OLAMINE
     Dosage: 50 MG, QD (2 INTO 25 MG)
     Route: 065
  2. REVOLADE [Suspect]
     Active Substance: ELTROMBOPAG OLAMINE
     Dosage: UNK
     Route: 048
  3. DESLORATADINE. [Suspect]
     Active Substance: DESLORATADINE
     Indication: RHINITIS
     Dosage: 5 MG, QD
     Route: 048
  4. ACETAMINOFEN [Concomitant]
     Active Substance: ACETAMINOPHEN
     Indication: HEADACHE
     Dosage: 500 MG, QD
     Route: 048
  5. DILTIAZEM. [Concomitant]
     Active Substance: DILTIAZEM
     Indication: ARRHYTHMIA
     Dosage: UNK, PRN
     Route: 065
  6. FUROSEMIDE. [Suspect]
     Active Substance: FUROSEMIDE
     Indication: FLUID RETENTION
     Dosage: 40 MG, QD
     Route: 048
  7. REVOLADE [Suspect]
     Active Substance: ELTROMBOPAG OLAMINE
     Indication: IMMUNE THROMBOCYTOPENIA
     Dosage: 50 MG, QD
     Route: 048
     Dates: start: 201911
  8. REVOLADE [Suspect]
     Active Substance: ELTROMBOPAG OLAMINE
     Dosage: 75 MG, QD (3*25 MG)
     Route: 065
     Dates: start: 201911, end: 201912

REACTIONS (26)
  - Platelet count abnormal [Unknown]
  - Head discomfort [Not Recovered/Not Resolved]
  - Nausea [Recovered/Resolved]
  - Discouragement [Unknown]
  - Fatigue [Unknown]
  - Nervousness [Unknown]
  - Anxiety [Unknown]
  - Mouth haemorrhage [Recovered/Resolved]
  - Pelvic haemorrhage [Recovered/Resolved]
  - Agitation [Unknown]
  - Feeling abnormal [Unknown]
  - Immune thrombocytopenia [Unknown]
  - Loss of consciousness [Unknown]
  - Insomnia [Unknown]
  - Asthenia [Unknown]
  - Blood iron decreased [Unknown]
  - Neurosis [Unknown]
  - Blood pressure increased [Unknown]
  - Epistaxis [Recovered/Resolved]
  - Dizziness [Recovered/Resolved]
  - Anaemia [Unknown]
  - Nausea [Unknown]
  - Cerebral haemorrhage [Recovered/Resolved]
  - Platelet count decreased [Unknown]
  - Blood cholesterol increased [Unknown]
  - Illness [Unknown]

NARRATIVE: CASE EVENT DATE: 20200312
